FAERS Safety Report 23198779 (Version 2)
Quarter: 2024Q1

REPORT INFORMATION
  Report Type: Spontaneous
  Country: JP (occurrence: JP)
  Receive Date: 20231117
  Receipt Date: 20240122
  Transmission Date: 20240410
  Serious: Yes (Death, Other)
  Sender: FDA-Public Use
  Company Number: JP-PFIZER INC-PV202300187610

PATIENT
  Age: 49 Year
  Sex: Male
  Weight: 62 kg

DRUGS (4)
  1. LORBRENA [Suspect]
     Active Substance: LORLATINIB
     Indication: Lung neoplasm malignant
     Dosage: 100 MG, 1X/DAY
     Route: 048
     Dates: start: 20231103, end: 20231107
  2. DEXTROMETHORPHAN HYDROBROMIDE [Concomitant]
     Active Substance: DEXTROMETHORPHAN HYDROBROMIDE
     Dosage: 15 MG, 3X/DAY
     Route: 048
     Dates: start: 20231028, end: 20231107
  3. CARBOCYSTEINE [Concomitant]
     Active Substance: CARBOCYSTEINE
     Dosage: 250 MG, 3X/DAY
     Route: 048
     Dates: start: 20230825, end: 20231107
  4. ESOMEPRAZOLE [Concomitant]
     Active Substance: ESOMEPRAZOLE
     Dosage: 20 MG, 1X/DAY
     Route: 048
     Dates: start: 20230825, end: 20231107

REACTIONS (4)
  - Ventricular fibrillation [Fatal]
  - Neoplasm progression [Fatal]
  - Cardio-respiratory arrest [Not Recovered/Not Resolved]
  - Atrioventricular block [Unknown]

NARRATIVE: CASE EVENT DATE: 20231105
